FAERS Safety Report 6499955-3 (Version None)
Quarter: 2009Q4

REPORT INFORMATION
  Report Type: 
  Country: None (occurrence: None)
  Receive Date: 20091216
  Receipt Date: 20091207
  Transmission Date: 20100525
  Serious: Yes (Hospitalization)
  Sender: FDA-Public Use
  Company Number: US-BIOGENIDEC-2005BI012708

PATIENT
  Age: 63 Year
  Sex: Female
  Weight: 166 kg

DRUGS (6)
  1. AVONEX [Suspect]
     Indication: MULTIPLE SCLEROSIS
     Route: 030
     Dates: start: 20010401, end: 20030101
  2. AVONEX [Suspect]
     Route: 030
     Dates: start: 20030101, end: 20060601
  3. AVONEX [Suspect]
     Route: 030
     Dates: start: 20061001
  4. ATENOLOL [Concomitant]
     Indication: HYPERTENSION
  5. XANAX [Concomitant]
     Indication: MENTAL DISORDER
  6. TYLENOL (CAPLET) [Concomitant]
     Indication: DRUG USE FOR UNKNOWN INDICATION

REACTIONS (11)
  - CARDIAC FAILURE CONGESTIVE [None]
  - CEREBROVASCULAR ACCIDENT [None]
  - CHILLS [None]
  - DYSSTASIA [None]
  - FEAR OF NEEDLES [None]
  - HYPOAESTHESIA [None]
  - LIMB INJURY [None]
  - OEDEMA PERIPHERAL [None]
  - PURULENCE [None]
  - SKIN LACERATION [None]
  - SLEEP DISORDER [None]
